FAERS Safety Report 20443121 (Version 1)
Quarter: 2022Q1

REPORT INFORMATION
  Report Type: Spontaneous
  Country: US (occurrence: US)
  Receive Date: 20220208
  Receipt Date: 20220208
  Transmission Date: 20220423
  Serious: No
  Sender: FDA-Public Use
  Company Number: US-BAYER-2022A019123

PATIENT
  Age: 30 Year
  Sex: Female

DRUGS (1)
  1. MIRENA [Suspect]
     Active Substance: LEVONORGESTREL
     Dosage: 20?G/DAY
     Route: 015
     Dates: start: 20220203, end: 20220203

REACTIONS (4)
  - Procedural pain [None]
  - Post procedural discomfort [None]
  - Complication of device insertion [None]
  - Device use issue [None]

NARRATIVE: CASE EVENT DATE: 20220203
